FAERS Safety Report 7113731-X (Version None)
Quarter: 2010Q4

REPORT INFORMATION
  Report Type: 
  Country: None (occurrence: None)
  Receive Date: 20101119
  Receipt Date: 20101111
  Transmission Date: 20110411
  Serious: Yes (Hospitalization)
  Sender: FDA-Public Use
  Company Number: LB-WATSON-2010-14909

PATIENT
  Age: 63 Year
  Sex: Female

DRUGS (2)
  1. DICLOFENAC (WATSON LABORATORIES) [Suspect]
     Indication: MIGRAINE
     Dosage: UNK
  2. DICLOFENAC (WATSON LABORATORIES) [Suspect]
     Indication: BACK PAIN

REACTIONS (4)
  - COLONIC STENOSIS [None]
  - GASTROINTESTINAL DISORDER [None]
  - HAEMORRHOIDS [None]
  - LARGE INTESTINAL ULCER [None]
